FAERS Safety Report 15982539 (Version 1)
Quarter: 2019Q1

REPORT INFORMATION
  Report Type: Other
  Country: US (occurrence: US)
  Receive Date: 20190219
  Receipt Date: 20190219
  Transmission Date: 20190418
  Serious: Yes (Hospitalization)
  Sender: FDA-Public Use
  Company Number: US-STASON PHARMACEUTICALS, INC.-2062896

PATIENT
  Age: 21 Year
  Sex: Male
  Weight: 55 kg

DRUGS (1)
  1. MERCAPTOPURINE. [Suspect]
     Active Substance: MERCAPTOPURINE

REACTIONS (3)
  - Neutropenia [Recovered/Resolved]
  - Chills [Recovered/Resolved]
  - Nausea [Unknown]
